FAERS Safety Report 18810033 (Version 1)
Quarter: 2021Q1

REPORT INFORMATION
  Report Type: Spontaneous
  Country: US (occurrence: US)
  Receive Date: 20210129
  Receipt Date: 20210129
  Transmission Date: 20210419
  Serious: No
  Sender: FDA-Public Use
  Company Number: US-PFIZER INC-2021081662

PATIENT
  Age: 79 Year
  Sex: Male

DRUGS (1)
  1. GABAPENTIN. [Suspect]
     Active Substance: GABAPENTIN
     Indication: PAIN
     Dosage: UNK
     Dates: end: 20201009

REACTIONS (3)
  - Insomnia [Unknown]
  - Off label use [Unknown]
  - Drug ineffective for unapproved indication [Unknown]
